FAERS Safety Report 13816050 (Version 1)
Quarter: 2017Q3

REPORT INFORMATION
  Report Type: Spontaneous
  Country: CA (occurrence: CA)
  Receive Date: 20170731
  Receipt Date: 20170731
  Transmission Date: 20171127
  Serious: Yes (Other)
  Sender: FDA-Public Use
  Company Number: CA-PFIZER INC-2017329695

PATIENT
  Age: 79 Year
  Sex: Female

DRUGS (26)
  1. METHOTREXATE SODIUM. [Suspect]
     Active Substance: METHOTREXATE SODIUM
     Indication: RHEUMATOID ARTHRITIS
     Dosage: 20 MG, QWK
     Route: 065
  2. ACLASTA [Concomitant]
     Active Substance: ZOLEDRONIC ACID
     Dosage: 5 MG, UNK
     Route: 042
  3. COLACE [Concomitant]
     Active Substance: DOCUSATE SODIUM
     Dosage: UNK
  4. CRANBERRY. [Concomitant]
     Active Substance: CRANBERRY
     Dosage: UNK
  5. MYRBETRIQ [Concomitant]
     Active Substance: MIRABEGRON
     Dosage: 50 MG, QD
  6. VALSARTAN AND HYDROCHLOROTHIAZIDE [Concomitant]
     Active Substance: HYDROCHLOROTHIAZIDE\VALSARTAN
     Dosage: UNK UNK, 1X/DAY
  7. METOPROLOL TEVA [Concomitant]
     Active Substance: METOPROLOL
     Dosage: 100 MG, 2 EVERY 1 DAY.
  8. ENBREL [Suspect]
     Active Substance: ETANERCEPT
     Indication: RHEUMATOID ARTHRITIS
     Dosage: 50 MG, QWK
     Route: 065
  9. ACETAMINOPHEN. [Concomitant]
     Active Substance: ACETAMINOPHEN
     Dosage: UNK
  10. ASPIRIN /00002701/ [Concomitant]
     Active Substance: ASPIRIN
     Dosage: UNK
  11. MACROGOL 3350 [Concomitant]
     Active Substance: POLYETHYLENE GLYCOL 3350
     Dosage: UNK
  12. NIFEDIPINE. [Concomitant]
     Active Substance: NIFEDIPINE
     Dosage: 30 MG, QD
  13. PANTOPRAZOLE [Concomitant]
     Active Substance: PANTOPRAZOLE
     Dosage: 40 MG, 2 EVERY 1 DAY.
  14. REPAGLINIDE. [Concomitant]
     Active Substance: REPAGLINIDE
     Dosage: 0.5 MG, 3 EVERY 1 DAY
  15. SYNTHROID [Concomitant]
     Active Substance: LEVOTHYROXINE SODIUM
     Dosage: 0.025 MG, QD
  16. LEFLUNOMIDE. [Suspect]
     Active Substance: LEFLUNOMIDE
     Dosage: 20 MG, QD
     Route: 048
  17. NITROFURANTOIN. [Concomitant]
     Active Substance: NITROFURANTOIN
     Dosage: 50 MG, QD
  18. COENZYME Q10 [Concomitant]
     Active Substance: UBIDECARENONE
     Dosage: UNK
  19. PREDNISONE. [Concomitant]
     Active Substance: PREDNISONE
     Dosage: UNK
  20. BIFIDOBACTERIUM BIFIDUM W/LACTOBACI/07208901/ [Concomitant]
     Dosage: UNK
  21. TRAJENTA [Concomitant]
     Active Substance: LINAGLIPTIN
     Dosage: 5.0 MG, QD
  22. CYMBALTA [Concomitant]
     Active Substance: DULOXETINE HYDROCHLORIDE
     Dosage: 90 MG, QD
  23. XELJANZ [Concomitant]
     Active Substance: TOFACITINIB CITRATE
     Dosage: UNK
  24. ERGOCALCIFEROL. [Concomitant]
     Active Substance: ERGOCALCIFEROL
     Dosage: UNK
  25. INSULIN GLARGINE [Concomitant]
     Active Substance: INSULIN GLARGINE
     Dosage: UNK
  26. OXYCODONE HYDROCHLORIDE. [Concomitant]
     Active Substance: OXYCODONE HYDROCHLORIDE
     Dosage: UNK

REACTIONS (8)
  - Skin disorder [Not Recovered/Not Resolved]
  - Post procedural infection [Not Recovered/Not Resolved]
  - Breast cancer [Not Recovered/Not Resolved]
  - Urinary tract infection [Not Recovered/Not Resolved]
  - Drug ineffective [Not Recovered/Not Resolved]
  - Drug intolerance [Not Recovered/Not Resolved]
  - Hepatic enzyme increased [Not Recovered/Not Resolved]
  - Hyperplasia [Not Recovered/Not Resolved]
